FAERS Safety Report 5830506-X (Version None)
Quarter: 2008Q3

REPORT INFORMATION
  Report Type: 
  Country: None (occurrence: None)
  Receive Date: 20080801
  Receipt Date: 20070618
  Transmission Date: 20090109
  Serious: No
  Sender: FDA-Public Use
  Company Number: US-BRISTOL-MYERS SQUIBB COMPANY-13817218

PATIENT
  Sex: Male
  Weight: 59 kg

DRUGS (6)
  1. COUMADIN [Suspect]
     Indication: ATRIAL FIBRILLATION
     Dosage: WAS ON 2 MG DAILY  6 TIMES A WEEK; RECENT CHANGE TO 2 MG DAILY 7 TIMES A WEEK
     Dates: start: 20040101
  2. COREG [Concomitant]
  3. ENALAPRIL MALEATE [Concomitant]
  4. ZETIA [Concomitant]
  5. TERAZOSIN HCL [Concomitant]
  6. TYLENOL [Concomitant]

REACTIONS (1)
  - INTERNATIONAL NORMALISED RATIO DECREASED [None]
